FAERS Safety Report 10052699 (Version 2)
Quarter: 2014Q2

REPORT INFORMATION
  Report Type: Spontaneous
  Country: UY (occurrence: UY)
  Receive Date: 20140402
  Receipt Date: 20140421
  Transmission Date: 20141212
  Serious: Yes (Other)
  Sender: FDA-Public Use
  Company Number: UY-WATSON-2014-05727

PATIENT
  Age: 6 Year
  Sex: 0

DRUGS (1)
  1. CEFUROXIME (UNKNOWN) [Suspect]
     Indication: ESCHERICHIA URINARY TRACT INFECTION
     Dosage: 150 MG/KG, DAILY
     Route: 042

REACTIONS (2)
  - Pathogen resistance [Unknown]
  - Treatment failure [Unknown]
